FAERS Safety Report 25657531 (Version 2)
Quarter: 2025Q3

REPORT INFORMATION
  Report Type: Report from Study
  Country: US (occurrence: US)
  Receive Date: 20250808
  Receipt Date: 20250902
  Transmission Date: 20251021
  Serious: Yes (Other)
  Sender: SUNOVION
  Company Number: US-SUMITOMO PHARMA SWITZERLAND GMBH-2025SPA007735

PATIENT
  Age: 77 Year
  Sex: Male

DRUGS (6)
  1. ORGOVYX [Suspect]
     Active Substance: RELUGOLIX
     Indication: Prostate cancer
     Route: 048
  2. XTANDI [Suspect]
     Active Substance: ENZALUTAMIDE
     Indication: Product used for unknown indication
  3. LOSARTAN POTASSIUM [Concomitant]
     Active Substance: LOSARTAN POTASSIUM
  4. AMLODIPINE BESYLATE [Concomitant]
     Active Substance: AMLODIPINE BESYLATE
  5. CALCIUM [Concomitant]
     Active Substance: CALCIUM
  6. MACRODANTIN [Concomitant]
     Active Substance: NITROFURANTOIN

REACTIONS (6)
  - Lower respiratory tract infection [Unknown]
  - Pharyngitis [Unknown]
  - Blood calcium decreased [Unknown]
  - Urinary tract infection [Unknown]
  - Feeling hot [Unknown]
  - Incorrect dose administered [Recovered/Resolved]
